FAERS Safety Report 6767360-8 (Version None)
Quarter: 2010Q2

REPORT INFORMATION
  Report Type: 
  Country: None (occurrence: None)
  Receive Date: 20100614
  Receipt Date: 20100514
  Transmission Date: 20101027
  Serious: No
  Sender: FDA-Public Use
  Company Number: US-BAYER-201015648BCC

PATIENT
  Age: 78 Year
  Sex: Female
  Weight: 64 kg

DRUGS (6)
  1. ALEVE [Suspect]
     Indication: PAIN IN EXTREMITY
     Dosage: TOTAL DAILY DOSE: 220 MG  UNIT DOSE: 220 MG
     Route: 048
     Dates: start: 20100513
  2. ZOCOR [Concomitant]
     Route: 065
  3. BENZTROPINE MESYLATE [Concomitant]
     Route: 065
  4. HALOPERIDOL [Concomitant]
     Route: 065
  5. PREVACID [Concomitant]
     Route: 065
  6. LACARTIS HTC [Concomitant]
     Route: 065

REACTIONS (3)
  - ABDOMINAL DISCOMFORT [None]
  - DIARRHOEA [None]
  - NAUSEA [None]
